FAERS Safety Report 4679761-2 (Version None)
Quarter: 2005Q2

REPORT INFORMATION
  Report Type: 
  Country: None (occurrence: None)
  Receive Date: 20050531
  Receipt Date: 20050525
  Transmission Date: 20051028
  Serious: Yes (Hospitalization, Other)
  Sender: FDA-Public Use
  Company Number: 20-862-05-00003

PATIENT
  Age: 64 Year
  Sex: Male

DRUGS (7)
  1. HECTOROL (DOXERCALCIFEROL) CAPSULES 2.5 MCG [Suspect]
     Indication: HYPERPARATHYROIDISM SECONDARY
     Dosage: 10 MCG 3XWEEK, ORAL
     Route: 048
  2. VERAPAMIL [Concomitant]
  3. AVAPRO [Concomitant]
  4. DIAMINE (BROMPHERAMINE) [Concomitant]
  5. CACO3 [Concomitant]
  6. FAMOTIDINE [Concomitant]
  7. IMODIUM (LOPARAMIDE) [Concomitant]

REACTIONS (1)
  - PANCREATITIS [None]
